FAERS Safety Report 7823116-6 (Version None)
Quarter: 2011Q4

REPORT INFORMATION
  Report Type: 
  Country: None (occurrence: None)
  Receive Date: 20111019
  Receipt Date: 20111012
  Transmission Date: 20120403
  Serious: Yes (Hospitalization)
  Sender: FDA-Public Use
  Company Number: US-BIOGENIDEC-2011BI026157

PATIENT
  Age: 48 Year
  Sex: Female

DRUGS (12)
  1. AVONEX [Suspect]
     Indication: RELAPSING-REMITTING MULTIPLE SCLEROSIS
     Route: 030
     Dates: start: 20070301
  2. ASPIRIN [Concomitant]
     Route: 048
  3. LOVAZA [Concomitant]
     Route: 048
  4. ZOLOFT [Concomitant]
     Indication: DEPRESSION
     Route: 048
     Dates: end: 20110601
  5. ZOLOFT [Concomitant]
     Route: 048
     Dates: start: 20110601
  6. ALEVE [Concomitant]
     Route: 048
  7. ACETAMINOPHEN [Concomitant]
     Route: 048
  8. BACLOFEN [Concomitant]
     Route: 048
  9. NALTREXONE HYDROCHLORIDE [Concomitant]
     Route: 048
  10. AVONEX [Suspect]
     Route: 030
  11. UNKNOWN ANTICONVULSANT [Concomitant]
     Indication: PARTIAL SEIZURES WITH SECONDARY GENERALISATION
  12. PROTONIX [Concomitant]
     Route: 048

REACTIONS (5)
  - CONVULSION [None]
  - CONTUSION [None]
  - HYPOXIC-ISCHAEMIC ENCEPHALOPATHY [None]
  - MEMORY IMPAIRMENT [None]
  - COGNITIVE DISORDER [None]
